FAERS Safety Report 8198570-3 (Version None)
Quarter: 2012Q1

REPORT INFORMATION
  Report Type: 
  Country: None (occurrence: None)
  Receive Date: 20120309
  Receipt Date: 20120106
  Transmission Date: 20120608
  Serious: No
  Sender: FDA-Public Use
  Company Number: US-AMGEN-USASP2012000995

PATIENT
  Age: 77 Year
  Sex: Female

DRUGS (7)
  1. CALCIUM [Concomitant]
     Dosage: UNK
  2. PROPRANOLOL [Concomitant]
  3. LISINOPRIL [Concomitant]
  4. PRAVACHOL [Concomitant]
  5. PROLIA [Suspect]
     Indication: OSTEOPOROSIS POSTMENOPAUSAL
     Dosage: 60 MG, Q6MO
     Dates: start: 20111114
  6. SYNTHROID [Concomitant]
  7. IMITREX [Concomitant]

REACTIONS (1)
  - CELLULITIS [None]
